FAERS Safety Report 13901039 (Version 1)
Quarter: 2017Q3

REPORT INFORMATION
  Report Type: Spontaneous
  Country: US (occurrence: None)
  Receive Date: 20170818
  Receipt Date: 20170818
  Transmission Date: 20171127
  Serious: Yes (Death)
  Sender: FDA-Public Use
  Company Number: None

PATIENT
  Age: 58 Year
  Sex: Female
  Weight: 95 kg

DRUGS (5)
  1. COMBISET DIALYSIS TUBING [Concomitant]
  2. VANCOMYCIN 1000MG [Suspect]
     Active Substance: VANCOMYCIN
     Indication: BLOOD CULTURE POSITIVE
     Route: 042
     Dates: start: 20170717
  3. FRESENIUS 2008 K HEMODIALYSIS MACHINE [Concomitant]
  4. OPTIFLUX 180NRE DIALYZER [Concomitant]
  5. VANCOMYCIN 1000MG [Suspect]
     Active Substance: VANCOMYCIN
     Indication: BACTERAEMIA
     Route: 042
     Dates: start: 20170717

REACTIONS (6)
  - Restlessness [None]
  - Hyperventilation [None]
  - Pulse absent [None]
  - Infusion related reaction [None]
  - Blood pressure decreased [None]
  - Unresponsive to stimuli [None]

NARRATIVE: CASE EVENT DATE: 20170717
